FAERS Safety Report 5792893-0 (Version None)
Quarter: 2008Q2

REPORT INFORMATION
  Report Type: 
  Country: None (occurrence: None)
  Receive Date: 20080626
  Receipt Date: 20080626
  Transmission Date: 20081010
  Serious: No
  Sender: FDA-Public Use
  Company Number: None

PATIENT
  Age: 66 Year
  Sex: Female
  Weight: 96.2 kg

DRUGS (1)
  1. OPTIRAY 350 [Suspect]
     Indication: DIAGNOSTIC PROCEDURE
     Dosage: 100 ML X 1
     Dates: start: 20080616

REACTIONS (4)
  - DOCUMENTED HYPERSENSITIVITY TO ADMINISTERED DRUG [None]
  - DYSPHONIA [None]
  - DYSPNOEA [None]
  - POST PROCEDURAL COMPLICATION [None]
